FAERS Safety Report 4380442-3 (Version None)
Quarter: 2004Q2

REPORT INFORMATION
  Report Type: 
  Country: None (occurrence: None)
  Receive Date: 20040614
  Receipt Date: 20040531
  Transmission Date: 20050107
  Serious: Yes (Hospitalization)
  Sender: FDA-Public Use
  Company Number: 2004216828JP

PATIENT
  Age: 47 Year
  Sex: Female

DRUGS (2)
  1. CAMPTOSAR [Suspect]
     Indication: PSEUDOMYXOMA PERITONEI
     Dosage: 170 MG, CYCLIC, IV DRIP
     Route: 041
     Dates: start: 20040107, end: 20040511
  2. MITOMYCIN [Suspect]
     Indication: PSEUDOMYXOMA PERITONEI
     Dosage: 10 MG, CYCLIC, IV DRIP
     Route: 041
     Dates: start: 20040107, end: 20040511

REACTIONS (1)
  - INTERSTITIAL LUNG DISEASE [None]
